FAERS Safety Report 10088320 (Version 1)
Quarter: 2014Q2

REPORT INFORMATION
  Report Type: Spontaneous
  Country: US (occurrence: US)
  Receive Date: 20140421
  Receipt Date: 20140421
  Transmission Date: 20141212
  Serious: No
  Sender: FDA-Public Use
  Company Number: US-009507513-1404USA010234

PATIENT
  Sex: 0

DRUGS (2)
  1. ASMANEX TWISTHALER [Suspect]
     Dosage: ONE PUFF ONCE A DAY
     Route: 055
  2. ASMANEX TWISTHALER [Suspect]
     Dosage: BASE UNIT: ONE PUFF ONCE A DAY
     Route: 055
     Dates: start: 201204

REACTIONS (3)
  - Ageusia [Unknown]
  - Anosmia [Unknown]
  - Product quality issue [Unknown]
